FAERS Safety Report 8118285-7 (Version None)
Quarter: 2012Q1

REPORT INFORMATION
  Report Type: 
  Country: None (occurrence: None)
  Receive Date: 20120207
  Receipt Date: 20120202
  Transmission Date: 20120608
  Serious: Yes (Other)
  Sender: FDA-Public Use
  Company Number: FI-AMGEN-FINCT2011035953

PATIENT
  Age: 72 Year
  Sex: Male

DRUGS (17)
  1. PANACOD [Concomitant]
     Indication: ARTHRODESIS
     Dosage: UNK UNK, TID
     Route: 048
  2. DENOSUMAB [Suspect]
     Indication: PROSTATE CANCER
  3. ORUDIS [Concomitant]
     Indication: OSTEOARTHRITIS
     Dosage: 50 MG, BID
     Route: 048
  4. CALCIUM [Concomitant]
     Dosage: 500 MG, BID
     Route: 048
  5. VITAMIN D [Concomitant]
     Dosage: 400 IU, BID
     Route: 048
  6. FELODIPINE [Concomitant]
     Indication: HYPERTENSION
     Dosage: UNK UNK, QD
     Route: 048
  7. ZOPINOX [Concomitant]
     Indication: INSOMNIA
     Dosage: 7.5 MG, UNK
     Route: 048
  8. PANTOPRAZOLE [Concomitant]
     Indication: NASOPHARYNGITIS
     Dosage: 40 MG, UNK
     Route: 048
  9. CLOTRIMAZOLE [Concomitant]
     Dosage: UNK UNK, BID
  10. EXPROS [Concomitant]
     Indication: OSTEOARTHRITIS
     Dosage: 0.4 MG, UNK
     Route: 048
  11. NASONEX [Concomitant]
     Indication: SINUSITIS
     Dosage: 100 MG, UNK
     Route: 050
  12. ATACAND HCT [Concomitant]
     Indication: HYPERTENSION
     Dosage: UNK UNK, QD
     Route: 048
  13. BEMETSON-K [Concomitant]
     Indication: ECZEMA
     Dosage: UNK UNK, PRN
  14. PRIMASPAN [Concomitant]
     Dosage: 100 MG, UNK
     Route: 048
  15. PANTOPRAZOLE [Concomitant]
     Indication: DYSPEPSIA
     Dosage: 40 MG, UNK
     Route: 048
  16. DESLORATADINE [Concomitant]
     Indication: SINUSITIS
     Dosage: 5 MG, UNK
     Route: 048
  17. ARCOXIA [Concomitant]
     Indication: NECK PAIN
     Dosage: 90 MG, QD
     Route: 048
     Dates: end: 20110215

REACTIONS (2)
  - PAIN IN JAW [None]
  - OSTEONECROSIS OF JAW [None]
